FAERS Safety Report 6234657-X (Version None)
Quarter: 2009Q2

REPORT INFORMATION
  Report Type: 
  Country: None (occurrence: None)
  Receive Date: 20090618
  Receipt Date: 20090613
  Transmission Date: 20091009
  Serious: Yes (Other)
  Sender: FDA-Public Use
  Company Number: B0578978A

PATIENT
  Age: 35 Year
  Sex: Female

DRUGS (1)
  1. CIGANON CQ1 [Suspect]
     Indication: SMOKING CESSATION THERAPY
     Dosage: 14MG PER DAY
     Route: 062
     Dates: start: 20090608, end: 20090609

REACTIONS (3)
  - APPLICATION SITE PRURITUS [None]
  - TOBACCO POISONING [None]
  - VOMITING [None]
